FAERS Safety Report 15302084 (Version 1)
Quarter: 2018Q3

REPORT INFORMATION
  Report Type: Spontaneous
  Country: US (occurrence: US)
  Receive Date: 20180821
  Receipt Date: 20180821
  Transmission Date: 20181010
  Serious: Yes (Hospitalization)
  Sender: FDA-Public Use
  Company Number: US-TEVA-2018-US-945807

PATIENT
  Age: 2 Year
  Sex: Female

DRUGS (1)
  1. CONSTULOSE [Suspect]
     Active Substance: LACTULOSE
     Indication: CONSTIPATION
     Route: 065

REACTIONS (2)
  - Milk allergy [Unknown]
  - Food allergy [Unknown]
